FAERS Safety Report 15858305 (Version 1)
Quarter: 2019Q1

REPORT INFORMATION
  Report Type: Spontaneous
  Country: FR (occurrence: FR)
  Receive Date: 20190123
  Receipt Date: 20190123
  Transmission Date: 20190417
  Serious: Yes (Hospitalization)
  Sender: FDA-Public Use
  Company Number: FR-MYLANLABS-2019M1005373

PATIENT
  Age: 28 Year
  Sex: Male
  Weight: 72 kg

DRUGS (9)
  1. ATARAX [Concomitant]
     Active Substance: HYDROXYZINE HYDROCHLORIDE
     Indication: INSOMNIA
     Dosage: 1-0-2
     Route: 048
     Dates: start: 2015
  2. TRANXENE [Concomitant]
     Active Substance: CLORAZEPATE DIPOTASSIUM
     Indication: ANXIETY
     Dosage: 40 MILLIGRAM, QD
     Route: 048
     Dates: start: 2016
  3. VALIUM [Concomitant]
     Active Substance: DIAZEPAM
     Indication: EPILEPSY
     Dosage: 10 MG : 1X4 JOUR
     Route: 048
     Dates: start: 2015
  4. CETIRIZINE                         /00884302/ [Concomitant]
     Active Substance: CETIRIZINE HYDROCHLORIDE
     Indication: HYPERSENSITIVITY
     Dosage: 1-0-0
     Route: 048
     Dates: start: 2016
  5. LAMICTAL [Concomitant]
     Active Substance: LAMOTRIGINE
     Indication: EPILEPSY
     Dosage: 2-0-2
     Route: 048
     Dates: start: 2007
  6. LOXAPAC                            /00401802/ [Suspect]
     Active Substance: LOXAPINE SUCCINATE
     Indication: PSYCHOTIC DISORDER
     Dosage: 140 [DRP] (DROP (1/12 MILLILITRE)), QD
     Route: 048
     Dates: start: 2016, end: 20180307
  7. CIRCADIN [Concomitant]
     Active Substance: MELATONIN
     Indication: INSOMNIA
     Dosage: 2 MILLIGRAM, QD
     Route: 048
     Dates: start: 2016
  8. RISPERIDONE. [Suspect]
     Active Substance: RISPERIDONE
     Indication: PSYCHOTIC DISORDER
     Dosage: 1-1-1
     Route: 048
     Dates: start: 2007, end: 20180307
  9. PULMODEXANE [Concomitant]
     Active Substance: DEXTROMETHORPHAN HYDROBROMIDE
     Indication: PRODUCT USED FOR UNKNOWN INDICATION
     Dosage: 2-3-2
     Route: 048
     Dates: start: 2007

REACTIONS (1)
  - Colitis ischaemic [Not Recovered/Not Resolved]

NARRATIVE: CASE EVENT DATE: 20180307
